FAERS Safety Report 10244778 (Version 1)
Quarter: 2014Q2

REPORT INFORMATION
  Report Type: Spontaneous
  Country: CA (occurrence: CA)
  Receive Date: 20140618
  Receipt Date: 20140618
  Transmission Date: 20141212
  Serious: Yes (Disabling)
  Sender: FDA-Public Use
  Company Number: PHHY2014CA075461

PATIENT
  Age: 67 Year
  Sex: Female
  Weight: 74.83 kg

DRUGS (6)
  1. DIOVAN [Suspect]
     Dosage: 40 MG, EVERY DAY
  2. D TABS [Concomitant]
     Dosage: UNK UKN, UNK
  3. ELAVIL [Concomitant]
     Dosage: UNK UKN, UNK
  4. METFORMIN [Concomitant]
     Dosage: UNK UKN, UNK
  5. PLAVIX [Concomitant]
     Dosage: UNK UKN, UNK
  6. SIMVASTATIN [Concomitant]
     Dosage: UNK UKN, UNK

REACTIONS (4)
  - Lichen planus [Unknown]
  - Mouth ulceration [Unknown]
  - Superinfection fungal [Unknown]
  - Disease progression [Unknown]
